FAERS Safety Report 24368738 (Version 1)
Quarter: 2024Q3

REPORT INFORMATION
  Report Type: Report from Study
  Country: US (occurrence: US)
  Receive Date: 20240926
  Receipt Date: 20240926
  Transmission Date: 20241017
  Serious: Yes (Hospitalization, Other)
  Sender: ABBVIE
  Company Number: US-ABBVIE-5820061

PATIENT
  Age: 79 Year
  Sex: Female
  Weight: 87.09 kg

DRUGS (18)
  1. RINVOQ [Suspect]
     Active Substance: UPADACITINIB
     Indication: Rheumatoid arthritis
     Route: 048
     Dates: start: 20240422, end: 20240627
  2. RINVOQ [Suspect]
     Active Substance: UPADACITINIB
     Indication: Rheumatoid arthritis
     Route: 048
     Dates: start: 20231225
  3. RINVOQ [Suspect]
     Active Substance: UPADACITINIB
     Indication: Rheumatoid arthritis
     Dosage: FIRST ADMIN DATE 2024
     Route: 048
     Dates: end: 20240711
  4. TYLENOL [Concomitant]
     Active Substance: ACETAMINOPHEN
     Indication: Pain
     Dosage: TIME INTERVAL: 0.33333333 DAYS: TAKE 2 TABLETS (1,000 MG)
     Route: 048
  5. ZYLOPRIM [Concomitant]
     Active Substance: ALLOPURINOL
     Indication: Product used for unknown indication
     Dosage: TAKE 1 TABLET (300 MG)
     Route: 048
  6. BIOTIN [Concomitant]
     Active Substance: BIOTIN
     Indication: Product used for unknown indication
     Dosage: 10000 MCG TABS?TAKE 1 TABLET
     Route: 048
  7. CALCIUM\VITAMIN D [Concomitant]
     Active Substance: CALCIUM\VITAMIN D
     Indication: Product used for unknown indication
     Dosage: 600-200 MG?TAKE 1 TABLET ?OVER THE COUNTER
     Route: 048
  8. CELEBREX [Concomitant]
     Active Substance: CELECOXIB
     Indication: Pain
     Dosage: TAKE 1 CAPSULE (100 MG)?AS NEEDED
     Route: 048
  9. CREON [Concomitant]
     Active Substance: PANCRELIPASE AMYLASE\PANCRELIPASE LIPASE\PANCRELIPASE PROTEASE
     Indication: Pancreatic failure
     Dosage: TIME INTERVAL: 0.33333333 DAYS: 24000-76000 UNITS?TAKE 2 CAPS BY MOUTH 3X DAILY WITH EACH MEAL?AN...
     Route: 048
  10. FERROUS SULFATE [Concomitant]
     Active Substance: FERROUS SULFATE
     Indication: Product used for unknown indication
     Dosage: TAKE 1 TABLET (325 MG) BY MOUTH DAILY.
     Route: 048
  11. LASIX [Concomitant]
     Active Substance: FUROSEMIDE
     Indication: Weight increased
     Dosage: TAKE 1 TABLET BY MOUTH DAILY. TAKE AN?ADDITIONAL 20 MG TABLET AS NEEDED FOR }2 LBS?WEIGHT GAIN
     Route: 048
  12. PLAQUENIL [Concomitant]
     Active Substance: HYDROXYCHLOROQUINE SULFATE
     Indication: Systemic lupus erythematosus
     Dosage: TAKE 1 TABLET (200 MG) BY MOUTH TWICE DAILY.
     Route: 048
  13. NIZORAL [Concomitant]
     Active Substance: KETOCONAZOLE
     Indication: Rash
     Dosage: USE A FEW TIMES A WEEK
  14. IMODIUM [Concomitant]
     Active Substance: LOPERAMIDE HYDROCHLORIDE
     Indication: Diarrhoea
     Dosage: TIME INTERVAL: AS NECESSARY: TAKE 1 CAPSULE (2 MG) BY MOUTH EVERY 3 HOURS AS?NEEDED (DIARRHEA). N...
     Route: 048
  15. VITAMIN D [Concomitant]
     Active Substance: VITAMIN D NOS
     Indication: Product used for unknown indication
     Dosage: 2000 UNITS ?TAKE 1 TABLET (2,000 UNITS) BY MOUTH DAILY.
     Route: 048
  16. ALDACTONE [Concomitant]
     Active Substance: SPIRONOLACTONE
     Indication: Product used for unknown indication
     Dosage: TAKE 1 TABLET BY MOUTH EVERY DAY
     Route: 048
  17. DESYREL [Concomitant]
     Active Substance: TRAZODONE HYDROCHLORIDE
     Indication: Product used for unknown indication
     Dosage: TAKE 0.5 TABLETS (25 MG) BY MOUTH AT BEDTIME
     Route: 048
  18. KENALOG [Concomitant]
     Active Substance: TRIAMCINOLONE ACETONIDE
     Indication: Rash
     Dosage: TIME INTERVAL: AS NECESSARY: APPLY THIN LAYER TO SKIN AFFECTED TID DAILY PRN FOR 2 WEEKS
     Route: 061

REACTIONS (13)
  - Skin cancer [Unknown]
  - Skin ulcer [Recovering/Resolving]
  - Impaired healing [Not Recovered/Not Resolved]
  - Folliculitis [Unknown]
  - Folliculitis genital [Unknown]
  - Oral herpes [Unknown]
  - Herpes simplex [Unknown]
  - Gingival bleeding [Unknown]
  - Stomatitis [Unknown]
  - Decubitus ulcer [Not Recovered/Not Resolved]
  - Skin abrasion [Not Recovered/Not Resolved]
  - Muscular weakness [Unknown]
  - Pancreatic failure [Unknown]

NARRATIVE: CASE EVENT DATE: 20240101
